FAERS Safety Report 16542693 (Version 1)
Quarter: 2019Q3

REPORT INFORMATION
  Report Type: Report from Study
  Country: IT (occurrence: IT)
  Receive Date: 20190709
  Receipt Date: 20190709
  Transmission Date: 20191004
  Serious: Yes (Hospitalization, Other)
  Sender: FDA-Public Use
  Company Number: IT-AUROBINDO-AUR-APL-2019-037986

PATIENT

DRUGS (1)
  1. CEFIXIME. [Suspect]
     Active Substance: CEFIXIME
     Indication: PNEUMONIA
     Dosage: 400 MILLIGRAM, DAILY
     Route: 065

REACTIONS (6)
  - Pneumonia pneumococcal [Recovered/Resolved]
  - Sepsis [Recovered/Resolved]
  - Cough [Recovered/Resolved]
  - Pyrexia [Recovered/Resolved]
  - Drug ineffective [Recovered/Resolved]
  - Pneumonia [Recovered/Resolved]
